FAERS Safety Report 25585643 (Version 1)
Quarter: 2025Q3

REPORT INFORMATION
  Report Type: Spontaneous
  Country: US (occurrence: None)
  Receive Date: 20250718
  Receipt Date: 20250718
  Transmission Date: 20251020
  Serious: Yes (Hospitalization)
  Sender: FDA-CTU
  Company Number: None

PATIENT
  Age: 75 Year
  Sex: Female
  Weight: 86.4 kg

DRUGS (17)
  1. RINVOQ [Suspect]
     Active Substance: UPADACITINIB
     Indication: Rheumatoid arthritis
     Dosage: OTHER QUANTITY : 1 TABLET(S);?FREQUENCY : DAILY;?
     Route: 048
     Dates: start: 20250713, end: 20250714
  2. Tikosyn 125 mcg q 12 hours [Concomitant]
  3. Eliquis 5 mg bid [Concomitant]
  4. Neurontin 1,800 mg qHS [Concomitant]
  5. Metformin 500 mg 2 qam [Concomitant]
  6. Humalog sliding scale before meals [Concomitant]
  7. Restates eye drops bid [Concomitant]
  8. Trazadone 100 mg qHS [Concomitant]
  9. Eyelea intraocular q 4 month [Concomitant]
  10. Cymbalta 60 mg jam and 30 mg qHS [Concomitant]
  11. methadone 5 mg qid [Concomitant]
  12. Atorvastatin 20 mcg injectable qHS [Concomitant]
  13. Calcium 1200 mg bid [Concomitant]
  14. Align 1 qd [Concomitant]
  15. Preservation 1 bid [Concomitant]
  16. Vit D 50 [Concomitant]
  17. Miralax qd [Concomitant]

REACTIONS (5)
  - Emotional distress [None]
  - Anxiety [None]
  - Memory impairment [None]
  - Headache [None]
  - Amnesia [None]

NARRATIVE: CASE EVENT DATE: 20250713
